FAERS Safety Report 9259609 (Version 1)
Quarter: 2013Q2

REPORT INFORMATION
  Report Type: Spontaneous
  Country: IT (occurrence: IT)
  Receive Date: 20130429
  Receipt Date: 20130429
  Transmission Date: 20140414
  Serious: Yes (Other)
  Sender: FDA-Public Use
  Company Number: IT-009507513-1304ITA014416

PATIENT
  Age: 22 Year
  Sex: Male

DRUGS (6)
  1. NOXAFIL [Suspect]
     Indication: ANTIFUNGAL PROPHYLAXIS
     Dosage: 800 MG/ML, QD
     Route: 048
     Dates: start: 20130405, end: 20130407
  2. ANTRA [Concomitant]
     Route: 042
  3. ZOVIRAX [Concomitant]
     Indication: ANTIVIRAL PROPHYLAXIS
     Dosage: 1050 MG, UNK
     Route: 042
     Dates: start: 20130313, end: 20130408
  4. SANDIMMUN [Concomitant]
     Dosage: 130 MG, UNK, STRENGTH: 50 MG/ML
     Dates: start: 20130402, end: 20130408
  5. TARGOSID [Concomitant]
     Indication: ANTIBIOTIC THERAPY
     Dosage: DOSE: 400 MG/3 ML, STRENGTH: 400 MG/3 ML
     Dates: start: 20130321, end: 20130408
  6. GLAZIDIM [Concomitant]
     Indication: ANTIBIOTIC THERAPY
     Dosage: 6 G, UNK
     Dates: start: 20130320, end: 20130408

REACTIONS (2)
  - Urticaria [Recovered/Resolved]
  - Pruritus [Recovered/Resolved]
